FAERS Safety Report 5308425-7 (Version None)
Quarter: 2007Q2

REPORT INFORMATION
  Report Type: 
  Country: None (occurrence: None)
  Receive Date: 20070423
  Receipt Date: 20070423
  Transmission Date: 20071010
  Serious: No
  Sender: FDA-Public Use
  Company Number: None

PATIENT
  Age: 40 Year
  Sex: Female
  Weight: 90.7194 kg

DRUGS (1)
  1. AVANDAMET [Suspect]
     Indication: DIABETES MELLITUS
     Dosage: 2/500    3 X A DAY   PO
     Route: 048
     Dates: start: 20060401, end: 20070401

REACTIONS (4)
  - BLINDNESS [None]
  - DIABETIC RETINAL OEDEMA [None]
  - FOOT FRACTURE [None]
  - HAND FRACTURE [None]
